FAERS Safety Report 21837657 (Version 1)
Quarter: 2023Q1

REPORT INFORMATION
  Report Type: Spontaneous
  Country: US (occurrence: US)
  Receive Date: 20230109
  Receipt Date: 20230109
  Transmission Date: 20230418
  Serious: Yes (Other)
  Sender: FDA-Public Use
  Company Number: US-PFIZER INC-PV202300002963

PATIENT

DRUGS (1)
  1. NICOTROL [Suspect]
     Active Substance: NICOTINE
     Dosage: UNK

REACTIONS (1)
  - Lung neoplasm malignant [Unknown]
